FAERS Safety Report 10055770 (Version 1)
Quarter: 2014Q2

REPORT INFORMATION
  Report Type: Spontaneous
  Country: PK (occurrence: None)
  Receive Date: 20140401
  Receipt Date: 20140401
  Transmission Date: 20141212
  Serious: Yes (Death, Hospitalization)
  Sender: FDA-Public Use
  Company Number: 2014P1002685

PATIENT
  Sex: 0

DRUGS (2)
  1. PYRIMETHAMINE [Suspect]
     Indication: ACCIDENTAL EXPOSURE TO PRODUCT
     Route: 048
     Dates: start: 20111201
  2. ISOTAB-20 (ISOSORBIDE UNKNOWN-UNKNOWN DINITRATE) [Concomitant]

REACTIONS (26)
  - Haemorrhage [None]
  - Thrombocytopenia [None]
  - Leukopenia [None]
  - Skin hyperpigmentation [None]
  - Vomiting [None]
  - Diarrhoea [None]
  - Pyrexia [None]
  - Abdominal pain [None]
  - Cough [None]
  - Pruritus [None]
  - Oropharyngeal pain [None]
  - Irritability [None]
  - Myalgia [None]
  - Arthralgia [None]
  - Epistaxis [None]
  - Mouth ulceration [None]
  - Melaena [None]
  - Gingival bleeding [None]
  - Petechiae [None]
  - Haematuria [None]
  - Haematochezia [None]
  - Haemoptysis [None]
  - Peritoneal haemorrhage [None]
  - Rash maculo-papular [None]
  - Xerosis [None]
  - Product contamination [None]
